FAERS Safety Report 20127368 (Version 2)
Quarter: 2022Q2

REPORT INFORMATION
  Report Type: Report from Study
  Country: GR (occurrence: GR)
  Receive Date: 20211129
  Receipt Date: 20220629
  Transmission Date: 20220721
  Serious: Yes (Other)
  Sender: FDA-Public Use
  Company Number: GR-002147023-NVSC2021GR227909

PATIENT
  Sex: Female

DRUGS (1)
  1. FINGOLIMOD [Suspect]
     Active Substance: FINGOLIMOD
     Indication: Multiple sclerosis
     Dosage: TREATMENT DISCONTINUED AT TIMES, DOSING SCHEDULE CHANGED TO FIVE TIMES A WEEK WITH WEEKENDS OFF
     Route: 065

REACTIONS (5)
  - Multiple sclerosis relapse [Unknown]
  - Lymphopenia [Unknown]
  - Upper respiratory tract infection [Unknown]
  - Urinary tract infection [Unknown]
  - Gastrointestinal infection [Unknown]
